FAERS Safety Report 9130207 (Version 1)
Quarter: 2013Q1

REPORT INFORMATION
  Report Type: Spontaneous
  Country: US (occurrence: US)
  Receive Date: 20130228
  Receipt Date: 20130228
  Transmission Date: 20140127
  Serious: Yes (Hospitalization, Other)
  Sender: FDA-Public Use
  Company Number: US-ABBOTT-13P-163-1054347-00

PATIENT
  Sex: Male
  Weight: 80.81 kg

DRUGS (7)
  1. HUMIRA [Suspect]
     Indication: CROHN^S DISEASE
     Route: 058
  2. REMICADE [Suspect]
     Indication: CROHN^S DISEASE
     Dosage: 100 MG DAILY, LYOPHILIZED POWDER
     Route: 042
  3. REMICADE [Suspect]
  4. PREDNISONE [Concomitant]
     Indication: PRODUCT USED FOR UNKNOWN INDICATION
     Route: 048
  5. ASPIRIN [Concomitant]
     Indication: CROHN^S DISEASE
     Route: 048
  6. PENTASA [Concomitant]
     Indication: CROHN^S DISEASE
     Route: 048
  7. CIMZIA [Concomitant]
     Indication: CROHN^S DISEASE
     Route: 058

REACTIONS (4)
  - Adverse event [Recovered/Resolved]
  - Adverse event [Recovered/Resolved]
  - Crohn^s disease [Recovered/Resolved]
  - Drug ineffective [Unknown]
